FAERS Safety Report 6822873-5 (Version None)
Quarter: 2010Q3

REPORT INFORMATION
  Report Type: 
  Country: None (occurrence: None)
  Receive Date: 20100707
  Receipt Date: 20100707
  Transmission Date: 20110219
  Serious: Yes (Other)
  Sender: FDA-Public Use
  Company Number: None

PATIENT
  Age: 55 Year
  Sex: Male
  Weight: 110.6777 kg

DRUGS (2)
  1. SIMVASTATIN [Suspect]
     Indication: BLOOD CHOLESTEROL INCREASED
     Dosage: SIMVASTATIN 2 A DAY PO
     Route: 048
     Dates: start: 20100623, end: 20100705
  2. TRICOR [Suspect]
     Indication: BLOOD CHOLESTEROL INCREASED
     Dosage: TRICOR 1 A DAY PO
     Route: 048
     Dates: start: 20100623, end: 20100705

REACTIONS (3)
  - CONSTIPATION [None]
  - FATIGUE [None]
  - MYALGIA [None]
